FAERS Safety Report 14891225 (Version 7)
Quarter: 2022Q2

REPORT INFORMATION
  Report Type: Report from Study
  Country: JP (occurrence: JP)
  Receive Date: 20180514
  Receipt Date: 20220531
  Transmission Date: 20220721
  Serious: Yes (Death, Life-Threatening, Hospitalization, Other)
  Sender: FDA-Public Use
  Company Number: JP-PFIZER INC-2016582578

PATIENT
  Age: 79 Year
  Sex: Female
  Weight: 43.2 kg

DRUGS (18)
  1. BOSULIF [Suspect]
     Active Substance: BOSUTINIB MONOHYDRATE
     Indication: Chronic myeloid leukaemia
     Dosage: 300 MG, 1X/DAY
     Route: 048
     Dates: start: 20161208, end: 20170127
  2. BOSULIF [Suspect]
     Active Substance: BOSUTINIB MONOHYDRATE
     Dosage: UNK
     Route: 048
     Dates: start: 20170307, end: 20171202
  3. FUROSEMIDE [Concomitant]
     Active Substance: FUROSEMIDE
     Indication: Cardiac failure
     Dosage: UNK
     Route: 048
     Dates: start: 20140115
  4. FUROSEMIDE [Concomitant]
     Active Substance: FUROSEMIDE
     Indication: Pleural effusion
  5. FUROSEMIDE [Concomitant]
     Active Substance: FUROSEMIDE
     Indication: Atrial fibrillation
  6. IRON [Concomitant]
     Active Substance: IRON
     Indication: Iron deficiency anaemia
     Dosage: UNK
     Route: 048
     Dates: start: 20140115
  7. HERBALS [Concomitant]
     Active Substance: HERBALS
     Indication: Diarrhoea
     Dosage: 2.5 G, 3X/DAY
     Route: 048
     Dates: start: 20161205, end: 20170308
  8. PROPAFENONE [Concomitant]
     Active Substance: PROPAFENONE
     Indication: Cardiac failure
     Dosage: UNK
     Route: 048
     Dates: start: 20140115
  9. PROPAFENONE [Concomitant]
     Active Substance: PROPAFENONE
     Indication: Pleural effusion
  10. PROPAFENONE [Concomitant]
     Active Substance: PROPAFENONE
     Indication: Atrial fibrillation
  11. XARELTO [Concomitant]
     Active Substance: RIVAROXABAN
     Indication: Cardiac failure
     Dosage: UNK
     Route: 048
     Dates: start: 20140115
  12. XARELTO [Concomitant]
     Active Substance: RIVAROXABAN
     Indication: Pleural effusion
  13. XARELTO [Concomitant]
     Active Substance: RIVAROXABAN
     Indication: Atrial fibrillation
  14. CARVEDILOL [Concomitant]
     Active Substance: CARVEDILOL
     Indication: Cardiac failure
     Dosage: UNK
     Route: 048
     Dates: start: 20140115
  15. CARVEDILOL [Concomitant]
     Active Substance: CARVEDILOL
     Indication: Pleural effusion
  16. CARVEDILOL [Concomitant]
     Active Substance: CARVEDILOL
     Indication: Atrial fibrillation
  17. LANSOPRAZOLE [Concomitant]
     Active Substance: LANSOPRAZOLE
     Indication: Prophylaxis against gastrointestinal ulcer
     Dosage: UNK
     Route: 048
     Dates: start: 20140115
  18. FLUNITRAZEPAM [Concomitant]
     Active Substance: FLUNITRAZEPAM
     Indication: Insomnia
     Dosage: UNK
     Route: 048
     Dates: start: 20140115

REACTIONS (3)
  - Pleural effusion [Fatal]
  - Cardiac failure [Not Recovered/Not Resolved]
  - Diarrhoea [Recovered/Resolved]

NARRATIVE: CASE EVENT DATE: 20161210
